FAERS Safety Report 4965204-8 (Version None)
Quarter: 2006Q1

REPORT INFORMATION
  Report Type: 
  Country: None (occurrence: None)
  Receive Date: 20060201
  Receipt Date: 20051123
  Transmission Date: 20060701
  Serious: No
  Sender: FDA-Public Use
  Company Number: FACT0500685

PATIENT
  Age: 59 Year
  Sex: Female

DRUGS (3)
  1. FACTIVE [Suspect]
     Indication: RESPIRATORY TRACT INFECTION BACTERIAL
     Dosage: 320 MG, QD, ORAL
     Route: 048
     Dates: start: 20051114, end: 20051118
  2. FLONASE [Concomitant]
  3. ESTRACE [Concomitant]

REACTIONS (3)
  - DRUG INEFFECTIVE [None]
  - MYDRIASIS [None]
  - PHOTOPHOBIA [None]
